FAERS Safety Report 21133294 (Version 1)
Quarter: 2022Q3

REPORT INFORMATION
  Report Type: Spontaneous
  Country: US (occurrence: US)
  Receive Date: 20220726
  Receipt Date: 20220726
  Transmission Date: 20221027
  Serious: No
  Sender: FDA-Public Use
  Company Number: US-PFIZER INC-202201005420

PATIENT
  Age: 53 Year
  Weight: 86.18 kg

DRUGS (7)
  1. PAXLOVID [Suspect]
     Active Substance: NIRMATRELVIR\RITONAVIR
     Indication: COVID-19 treatment
     Dosage: UNK
     Dates: start: 20220721
  2. AMLODIPINE [Concomitant]
     Active Substance: AMLODIPINE BESYLATE
     Dosage: UNK
  3. VITAMIN D3 [Concomitant]
     Active Substance: CHOLECALCIFEROL
     Dosage: UNK
  4. PREVAGEN [APOAEQUORIN;COLECALCIFEROL] [Concomitant]
     Dosage: UNK
  5. ZINC [Concomitant]
     Active Substance: ZINC
     Dosage: UNK
  6. MAGNESIUM CITRATE [Concomitant]
     Active Substance: MAGNESIUM CITRATE
     Dosage: UNK
  7. PRONATE [CLOBETASOL PROPIONATE] [Concomitant]
     Dosage: UNK

REACTIONS (2)
  - Dysgeusia [Unknown]
  - Hypoaesthesia oral [Unknown]
